FAERS Safety Report 19642814 (Version 1)
Quarter: 2021Q3

REPORT INFORMATION
  Report Type: Spontaneous
  Country: CA (occurrence: CA)
  Receive Date: 20210730
  Receipt Date: 20210730
  Transmission Date: 20211014
  Serious: Yes (Other)
  Sender: FDA-Public Use
  Company Number: CA-PFIZER INC-202100930490

PATIENT
  Sex: Female

DRUGS (1)
  1. RITUXIMAB. [Suspect]
     Active Substance: RITUXIMAB
     Dosage: 500 MG

REACTIONS (6)
  - Confusional state [Unknown]
  - Progressive multifocal leukoencephalopathy [Unknown]
  - Somnolence [Unknown]
  - Amnesia [Unknown]
  - Gait disturbance [Unknown]
  - Rheumatoid arthritis [Unknown]
